FAERS Safety Report 23475229 (Version 1)
Quarter: 2024Q1

REPORT INFORMATION
  Report Type: Report from Study
  Country: US (occurrence: US)
  Receive Date: 20240204
  Receipt Date: 20240204
  Transmission Date: 20240409
  Serious: No
  Sender: FDA-Public Use
  Company Number: US-EXELIXIS-CABO-22058583

PATIENT
  Sex: Male

DRUGS (2)
  1. CABOMETYX [Suspect]
     Active Substance: CABOZANTINIB S-MALATE
     Indication: Renal cancer
     Dosage: 20 MG, QD
     Route: 048
     Dates: start: 20210413
  2. CABOMETYX [Suspect]
     Active Substance: CABOZANTINIB S-MALATE
     Indication: Metastases to lung

REACTIONS (7)
  - Sensitive skin [Unknown]
  - Oropharyngeal discomfort [Unknown]
  - Stomatitis [Unknown]
  - Abdominal pain upper [Unknown]
  - Nausea [Unknown]
  - Dysphonia [Unknown]
  - Pain in extremity [Unknown]
